FAERS Safety Report 6628464-3 (Version None)
Quarter: 2010Q1

REPORT INFORMATION
  Report Type: 
  Country: None (occurrence: None)
  Receive Date: 20100311
  Receipt Date: 20100303
  Transmission Date: 20100710
  Serious: No
  Sender: FDA-Public Use
  Company Number: AU-JNJFOC-20100301415

PATIENT
  Sex: Male

DRUGS (9)
  1. DURAGESIC-100 [Suspect]
     Indication: BACK PAIN
     Route: 062
  2. DURAGESIC-100 [Suspect]
     Route: 062
  3. TRAMADOL HYDROCHLORIDE [Concomitant]
     Route: 065
  4. PREDNISOLONE [Concomitant]
     Route: 065
  5. ASPIRIN [Concomitant]
     Route: 065
  6. RAMIPRIL [Concomitant]
     Route: 065
  7. SOMAC [Concomitant]
     Route: 065
  8. LIPITOR [Concomitant]
     Route: 065
  9. ACETAMINOPHEN W/ CODEINE [Concomitant]
     Route: 065

REACTIONS (5)
  - BREAKTHROUGH PAIN [None]
  - PRODUCT ADHESION ISSUE [None]
  - PRODUCT QUALITY ISSUE [None]
  - THERAPEUTIC RESPONSE DECREASED [None]
  - WRONG TECHNIQUE IN DRUG USAGE PROCESS [None]
